FAERS Safety Report 24378350 (Version 1)
Quarter: 2024Q3

REPORT INFORMATION
  Report Type: Spontaneous
  Country: US (occurrence: None)
  Receive Date: 20240928
  Receipt Date: 20240928
  Transmission Date: 20241017
  Serious: Yes (Other)
  Sender: Public
  Company Number: None

PATIENT
  Age: 31 Year
  Sex: Male

DRUGS (3)
  1. .DELTA.9-TETRAHYDROCANNABINOL ACETATE\CANNABIDIOL\HERBALS [Suspect]
     Active Substance: .DELTA.9-TETRAHYDROCANNABINOL ACETATE\CANNABIDIOL\HERBALS
     Dates: start: 20240924, end: 20240928
  2. .DELTA.9-TETRAHYDROCANNABINOL ACETATE\HERBALS [Suspect]
     Active Substance: .DELTA.9-TETRAHYDROCANNABINOL ACETATE\HERBALS
  3. AMLODIPINE [Concomitant]
     Active Substance: AMLODIPINE BESYLATE

REACTIONS (5)
  - Suspected counterfeit product [None]
  - Headache [None]
  - Throat irritation [None]
  - Product taste abnormal [None]
  - Illness [None]

NARRATIVE: CASE EVENT DATE: 20240924
